FAERS Safety Report 9739194 (Version 1)
Quarter: 2013Q4

REPORT INFORMATION
  Report Type: Spontaneous
  Country: US (occurrence: US)
  Receive Date: 20131209
  Receipt Date: 20131209
  Transmission Date: 20140711
  Serious: No
  Sender: FDA-Public Use
  Company Number: US-PFIZER INC-2013351153

PATIENT
  Sex: Female
  Weight: 81.63 kg

DRUGS (3)
  1. AMLODIPINE BESILATE [Suspect]
     Indication: HYPERTENSION
     Dosage: 5 MG, 1X/DAY
     Route: 048
  2. DIAZEPAM [Concomitant]
     Indication: IRRITABLE BOWEL SYNDROME
     Dosage: 5 MG, UNK
  3. PREMARIN VAGINAL CREAM [Concomitant]
     Indication: VULVOVAGINAL DRYNESS
     Dosage: 1.250 MG AS NEEDED, TWO TO THREE TIMES A WEEK
     Route: 067

REACTIONS (2)
  - Pain in extremity [Unknown]
  - Local swelling [Unknown]
